FAERS Safety Report 14653521 (Version 4)
Quarter: 2018Q3

REPORT INFORMATION
  Report Type: Spontaneous
  Country: US (occurrence: US)
  Receive Date: 20180319
  Receipt Date: 20180723
  Transmission Date: 20181010
  Serious: Yes (Life-Threatening, Hospitalization)
  Sender: FDA-Public Use
  Company Number: US-VIFOR (INTERNATIONAL) INC.-VIT-2018-02624

PATIENT
  Age: 56 Year
  Sex: Female
  Weight: 132 kg

DRUGS (4)
  1. ARANESP [Concomitant]
     Active Substance: DARBEPOETIN ALFA
  2. MIRCERA [Suspect]
     Active Substance: METHOXY POLYETHYLENE GLYCOL-EPOETIN BETA
     Indication: NEPHROGENIC ANAEMIA
     Route: 040
     Dates: start: 20180307, end: 20180307
  3. VENOFER [Suspect]
     Active Substance: IRON SUCROSE
     Indication: IRON DEFICIENCY ANAEMIA
     Route: 040
     Dates: start: 20180226, end: 20180307
  4. MIDODRINE [Concomitant]
     Active Substance: MIDODRINE
     Route: 048

REACTIONS (5)
  - Abdominal discomfort [Recovered/Resolved]
  - Unresponsive to stimuli [Recovered/Resolved]
  - Nausea [Recovered/Resolved]
  - Pulse absent [Recovered/Resolved]
  - Vomiting [Unknown]

NARRATIVE: CASE EVENT DATE: 20180307
